FAERS Safety Report 7322077-6 (Version None)
Quarter: 2011Q1

REPORT INFORMATION
  Report Type: 
  Country: None (occurrence: None)
  Receive Date: 20110228
  Receipt Date: 20110217
  Transmission Date: 20110831
  Serious: Yes (Hospitalization)
  Sender: FDA-Public Use
  Company Number: PHHY2009TW60834

PATIENT
  Sex: Female

DRUGS (2)
  1. EXJADE [Suspect]
     Dosage: 1250 MG, UNK
     Route: 048
  2. EXJADE [Suspect]
     Indication: APLASTIC ANAEMIA
     Dosage: 500 MG, UNK
     Route: 048

REACTIONS (11)
  - PLATELET COUNT DECREASED [None]
  - MOUTH ULCERATION [None]
  - HAEMOGLOBIN DECREASED [None]
  - ASTHENIA [None]
  - VOMITING [None]
  - DIZZINESS [None]
  - WHITE BLOOD CELL COUNT DECREASED [None]
  - GLOSSODYNIA [None]
  - ORAL MUCOSA EROSION [None]
  - HAEMORRHAGE [None]
  - HYPOPHAGIA [None]
